FAERS Safety Report 11788090 (Version 4)
Quarter: 2016Q1

REPORT INFORMATION
  Report Type: Report from Study
  Country: US (occurrence: US)
  Receive Date: 20151130
  Receipt Date: 20160307
  Transmission Date: 20160525
  Serious: No
  Sender: FDA-Public Use
  Company Number: US-AMGEN-USASL2015126257

PATIENT
  Age: 48 Year
  Sex: Female

DRUGS (1)
  1. ENBREL [Suspect]
     Active Substance: ETANERCEPT
     Indication: RHEUMATOID ARTHRITIS
     Dosage: 50 MG, QWK
     Route: 065
     Dates: start: 20151110

REACTIONS (8)
  - Upper respiratory tract infection [Unknown]
  - Paranasal sinus hypersecretion [Unknown]
  - Dysphonia [Unknown]
  - Hyperhidrosis [Unknown]
  - Fatigue [Unknown]
  - Malaise [Unknown]
  - Nasopharyngitis [Unknown]
  - Feeling cold [Unknown]

NARRATIVE: CASE EVENT DATE: 2015
